FAERS Safety Report 5893047-X (Version None)
Quarter: 2008Q3

REPORT INFORMATION
  Report Type: 
  Country: None (occurrence: None)
  Receive Date: 20080923
  Receipt Date: 20080305
  Transmission Date: 20090109
  Serious: No
  Sender: FDA-Public Use
  Company Number: US-ASTRAZENECA-2006UW27589

PATIENT
  Age: 30 Year
  Sex: Female

DRUGS (3)
  1. SEROQUEL [Suspect]
     Route: 048
     Dates: start: 20031101, end: 20050401
  2. RISPERDAL [Suspect]
  3. ZYPREXA [Suspect]
     Indication: SCHIZOPHRENIA
     Dosage: 300-400 MG
     Dates: start: 20000101, end: 20030201

REACTIONS (4)
  - DIABETES MELLITUS [None]
  - OVARIAN CYST [None]
  - THYROID DISORDER [None]
  - WEIGHT INCREASED [None]
